FAERS Safety Report 25260290 (Version 1)
Quarter: 2025Q2

REPORT INFORMATION
  Report Type: Spontaneous
  Country: US (occurrence: US)
  Receive Date: 20250501
  Receipt Date: 20250501
  Transmission Date: 20250717
  Serious: Yes (Disabling, Other)
  Sender: CHATTEM
  Company Number: US-OPELLA-2025OHG011998

PATIENT
  Sex: Female

DRUGS (10)
  1. GOLD BOND ORIGINAL STRENGTH [Suspect]
     Active Substance: MENTHOL
     Indication: Product used for unknown indication
     Route: 061
  2. ondansetron (Zofran) 8 MG tablet [Concomitant]
     Indication: Prophylaxis of nausea and vomiting
     Route: 048
  3. lisinopril (ZESTRIL) 20 MG tablet [Concomitant]
     Indication: Product used for unknown indication
     Dosage: TAKE 20 MG BY MOUTH DAILY.
     Route: 048
  4. ibandronate BONIVA 150 mg tablet [Concomitant]
     Indication: Product used for unknown indication
     Route: 048
  5. pantoprazole (PROTONIX) 40 mg tablet [Concomitant]
     Indication: Product used for unknown indication
     Dosage: TAKE 40 MG BY MOUTH DAILY.
     Route: 048
  6. ezetimibe (ZETIA) 10 mg tablet [Concomitant]
     Indication: Product used for unknown indication
     Route: 048
  7. escitalopram (LEXAPRO) 10 mg tablet [Concomitant]
     Indication: Product used for unknown indication
     Dosage: TAKE 1 TABLET BY MOUTH DAILY.
     Route: 048
  8. levothyroxine (SYNTHYROID) 25 mcg tablet [Concomitant]
     Indication: Product used for unknown indication
     Dosage: TAKE 1 TABLET BY MOUTH EVERY DAY IN THE MORNING ON EMPTY STOMACH
     Route: 048
  9. magnesium po [Concomitant]
     Indication: Product used for unknown indication
     Route: 048
  10. Naproxen (Aleve) [Concomitant]
     Indication: Pain
     Route: 065

REACTIONS (2)
  - Pleural mesothelioma malignant [Unknown]
  - Exposure to chemical pollution [Unknown]

NARRATIVE: CASE EVENT DATE: 20240601
